FAERS Safety Report 20926012 (Version 1)
Quarter: 2022Q2

REPORT INFORMATION
  Report Type: Spontaneous
  Country: CN (occurrence: CN)
  Receive Date: 20220607
  Receipt Date: 20220607
  Transmission Date: 20220720
  Serious: Yes (Hospitalization, Other)
  Sender: FDA-Public Use
  Company Number: CN-009507513-2206CHN000594

PATIENT
  Age: 70 Year
  Sex: Male
  Weight: 63 kg

DRUGS (3)
  1. NOXAFIL [Suspect]
     Active Substance: POSACONAZOLE
     Indication: Myelodysplastic syndrome
     Dosage: 200 MG, 3 TIMES 1DAY (TID)
     Route: 048
     Dates: start: 20220502, end: 20220515
  2. CEFOPERAZONE SODIUM\SULBACTAM SODIUM [Concomitant]
     Active Substance: CEFOPERAZONE SODIUM\SULBACTAM SODIUM
     Indication: Myelodysplastic syndrome
     Dosage: 3 G, Q12H, ROUTE: PUMP INJECTION
     Dates: start: 20220421, end: 20220506
  3. SODIUM CHLORIDE [Concomitant]
     Active Substance: SODIUM CHLORIDE
     Dosage: 100 ML, Q12H
     Dates: start: 20220421, end: 20220506

REACTIONS (2)
  - Drug-induced liver injury [Unknown]
  - Myelodysplastic syndrome [Unknown]

NARRATIVE: CASE EVENT DATE: 20220511
